FAERS Safety Report 19605711 (Version 2)
Quarter: 2021Q3

REPORT INFORMATION
  Report Type: Spontaneous
  Country: TR (occurrence: TR)
  Receive Date: 20210723
  Receipt Date: 20210730
  Transmission Date: 20211014
  Serious: Yes (Other)
  Sender: FDA-Public Use
  Company Number: TR-FERRINGPH-2021FE04774

PATIENT
  Age: 54 Year

DRUGS (1)
  1. CHORIONIC GONADOTROPHIN [Suspect]
     Active Substance: CHORIOGONADOTROPIN ALFA
     Indication: OVERWEIGHT
     Dosage: 125 IU, DAILY
     Route: 058

REACTIONS (6)
  - Pulmonary embolism [Unknown]
  - Vaginal haemorrhage [Unknown]
  - Breast swelling [Unknown]
  - Product use in unapproved indication [Recovered/Resolved]
  - Off label use [Recovered/Resolved]
  - Flushing [Unknown]
